FAERS Safety Report 8813991 (Version 1)
Quarter: 2012Q4

REPORT INFORMATION
  Report Type: Spontaneous
  Country: US (occurrence: None)
  Receive Date: 20120926
  Receipt Date: 20120926
  Transmission Date: 20130627
  Serious: Yes (Hospitalization)
  Sender: FDA-Public Use
  Company Number: None

PATIENT
  Age: 59 Year
  Sex: Female
  Weight: 80.29 kg

DRUGS (22)
  1. BRENTUXIMAB VEDOTIN [Suspect]
     Indication: ACUTE GRAFT VERSUS HOST DISEASE
     Dosage: 0.6-1.8mg/kg IV Weeklyx4
     Route: 042
     Dates: start: 20120808, end: 20120918
  2. ACTIGALL (URSODIOL) [Concomitant]
  3. BECLOMETHASONE [Concomitant]
  4. COLACE (DOCUSATE SODIUM) [Concomitant]
  5. FLUCONAZOLE [Concomitant]
  6. GLUCOPHAGE (METFORMIN) [Concomitant]
  7. HEPARIN [Concomitant]
  8. LORAZEPAM [Concomitant]
  9. MARINOL (DRONABINOL) [Concomitant]
  10. MAG OXIDE (MAGNESIUM OXIDE) [Concomitant]
  11. OXYCODONE [Concomitant]
  12. PAXIL (PAROXETINE) [Concomitant]
  13. PENTAMIDINE ISETHIONATE [Concomitant]
  14. POTASSIUM CHLORIDE [Concomitant]
  15. PREDNISONE [Concomitant]
  16. PRILOSEC (OMEPRAZOLE) [Concomitant]
  17. RITALIN (METHYLPHENIDATE HCL ) [Concomitant]
  18. SENNA (SENNOSIDES) [Concomitant]
  19. SODIUM CHLORIDE [Concomitant]
  20. TACROLIMUS [Concomitant]
  21. VALCYTE (VALGANCICLOVIR) [Concomitant]
  22. ZOFRAN (CHEMO N/V) (ONDANSETRON HCL) (CHEMO N/V) [Concomitant]

REACTIONS (13)
  - White blood cell count decreased [None]
  - Malaise [None]
  - Hypophagia [None]
  - Unresponsive to stimuli [None]
  - Febrile neutropenia [None]
  - Hypotension [None]
  - Sepsis [None]
  - Cardiac valve disease [None]
  - Mitral valve incompetence [None]
  - Tricuspid valve incompetence [None]
  - Pericarditis [None]
  - Mental status changes [None]
  - Encephalopathy [None]
